FAERS Safety Report 10058530 (Version 1)
Quarter: 2014Q2

REPORT INFORMATION
  Report Type: Report from Study
  Country: US (occurrence: US)
  Receive Date: 20140404
  Receipt Date: 20140404
  Transmission Date: 20141212
  Serious: Yes (Hospitalization)
  Sender: FDA-Public Use
  Company Number: US-009507513-1404USA000972

PATIENT
  Age: 23 Year
  Sex: Female
  Weight: 83 kg

DRUGS (6)
  1. VORINOSTAT [Suspect]
     Dosage: 300 MG TID, ON DAYS 1-3
     Route: 048
     Dates: start: 20140304, end: 20140306
  2. CYTARABINE [Suspect]
     Indication: ACUTE MYELOID LEUKAEMIA
     Dosage: 1500 MG/M2, QD, ON DAYS 4-7
     Route: 042
     Dates: start: 20140127, end: 20140130
  3. CYTARABINE [Suspect]
     Dosage: 750 MG/M2, QD, ON DAYS 4-6
     Route: 042
     Dates: start: 20140307, end: 20140309
  4. IDARUBICIN HYDROCHLORIDE [Suspect]
     Indication: ACUTE MYELOID LEUKAEMIA
     Dosage: 12 MG/M2/DAY OVER 15 MIN ON DAYS 4-6
     Route: 042
     Dates: start: 20140127, end: 20140129
  5. IDARUBICIN HYDROCHLORIDE [Suspect]
     Dosage: 8 MG/M2/DAY OVER 15 MIN ON DAYS 4-5
     Route: 042
     Dates: start: 20140307, end: 20140308
  6. VORINOSTAT [Suspect]
     Indication: ACUTE MYELOID LEUKAEMIA
     Dosage: 300 MG, TID, ON DAYS 1-3
     Route: 048
     Dates: start: 20140124, end: 20140126

REACTIONS (1)
  - Febrile neutropenia [Recovered/Resolved]
